FAERS Safety Report 23280984 (Version 1)
Quarter: 2023Q4

REPORT INFORMATION
  Report Type: Spontaneous
  Country: AU (occurrence: JP)
  Receive Date: 20231211
  Receipt Date: 20231211
  Transmission Date: 20240110
  Serious: Yes (Hospitalization)
  Sender: FDA-Public Use
  Company Number: AU-NOVOPROD-1147941

PATIENT
  Age: 86 Year
  Sex: Female
  Weight: 40 kg

DRUGS (1)
  1. RYBELSUS [Suspect]
     Active Substance: SEMAGLUTIDE
     Indication: Diabetes mellitus
     Dosage: 7 MG, QD
     Route: 048

REACTIONS (3)
  - Feeding disorder [Unknown]
  - Malaise [Unknown]
  - Vomiting [Unknown]
